FAERS Safety Report 17492240 (Version 1)
Quarter: 2020Q1

REPORT INFORMATION
  Report Type: Report from Study
  Country: AU (occurrence: AU)
  Receive Date: 20200304
  Receipt Date: 20200304
  Transmission Date: 20200409
  Serious: Yes (Other)
  Sender: FDA-Public Use
  Company Number: AU-REGENERON PHARMACEUTICALS, INC.-2020-22394

PATIENT

DRUGS (2)
  1. EYLEA [Suspect]
     Active Substance: AFLIBERCEPT
     Indication: DIABETIC RETINAL OEDEMA
     Dosage: BILATERAL; UNKNOWN DOSE, FREQUENCY AND TOTAL NUMBER OF INJECTIONS
     Dates: start: 2019
  2. INSULIN [Concomitant]
     Active Substance: INSULIN NOS
     Indication: DIABETES MELLITUS
     Dosage: UNK
     Dates: start: 2017

REACTIONS (3)
  - Cataract [Not Recovered/Not Resolved]
  - Vision blurred [Unknown]
  - Device dislocation [Recovering/Resolving]

NARRATIVE: CASE EVENT DATE: 20200206
